FAERS Safety Report 6839199-6 (Version None)
Quarter: 2010Q3

REPORT INFORMATION
  Report Type: 
  Country: None (occurrence: None)
  Receive Date: 20100709
  Receipt Date: 20100628
  Transmission Date: 20110219
  Serious: Yes (Hospitalization)
  Sender: FDA-Public Use
  Company Number: 2010EU003109

PATIENT
  Age: 41 Year
  Sex: Female

DRUGS (8)
  1. PROGRAF [Suspect]
     Indication: PROPHYLAXIS AGAINST TRANSPLANT REJECTION
     Dosage: 2.5 MG, BID, ORAL, 2 MG, BID
     Route: 048
     Dates: start: 20080801
  2. CELLCEPT [Concomitant]
  3. CORTANCYL [Concomitant]
  4. OMEPRAZOLE [Concomitant]
  5. SECTRAL [Concomitant]
  6. EUPRESSYL (URAPIDIL) [Concomitant]
  7. AMLODIPINE BESYLATE [Concomitant]
  8. RAMIPRIL [Concomitant]

REACTIONS (2)
  - OVERDOSE [None]
  - RENAL FAILURE ACUTE [None]
